FAERS Safety Report 13351507 (Version 1)
Quarter: 2017Q1

REPORT INFORMATION
  Report Type: Spontaneous
  Country: None (occurrence: US)
  Receive Date: 20170320
  Receipt Date: 20170320
  Transmission Date: 20170429
  Serious: No
  Sender: FDA-Public Use
  Company Number: US-MERZ NORTH AMERICA, INC.-17MRZ-00073

PATIENT
  Age: 54 Year
  Sex: Female

DRUGS (1)
  1. XEOMIN [Suspect]
     Active Substance: INCOBOTULINUMTOXINA
     Indication: SKIN WRINKLING
     Dosage: 20 UNITS
     Dates: start: 20170228

REACTIONS (4)
  - Adverse reaction [Unknown]
  - Eyelid ptosis [Unknown]
  - Heart rate abnormal [Unknown]
  - Loss of consciousness [Unknown]
